FAERS Safety Report 4632374-0 (Version None)
Quarter: 2005Q2

REPORT INFORMATION
  Report Type: 
  Country: None (occurrence: None)
  Receive Date: 20050411
  Receipt Date: 20050210
  Transmission Date: 20051028
  Serious: Yes (Hospitalization)
  Sender: FDA-Public Use
  Company Number: FR-GLAXOSMITHKLINE-B0372490A

PATIENT
  Age: 85 Year
  Sex: Female
  Weight: 39 kg

DRUGS (5)
  1. LAMOTRIGINE [Suspect]
     Indication: EPILEPSY
     Route: 048
     Dates: start: 20041215, end: 20050222
  2. ISOPTINE LP [Concomitant]
     Indication: HYPERTENSION
     Dosage: 240MG PER DAY
     Route: 048
  3. LIPANTHYL [Concomitant]
     Indication: DYSLIPIDAEMIA
     Dosage: 1TAB PER DAY
     Route: 048
  4. TEMESTA [Concomitant]
     Indication: INSOMNIA
     Dosage: 1MG PER DAY
     Route: 048
  5. CALTRATE VITAMINE D3 [Concomitant]
     Indication: OSTEOPOROSIS
     Dosage: 2TAB PER DAY
     Route: 048

REACTIONS (9)
  - AGGRESSION [None]
  - CONFUSIONAL STATE [None]
  - DRUG INEFFECTIVE [None]
  - EPILEPSY [None]
  - INSOMNIA [None]
  - LOGORRHOEA [None]
  - MANIA [None]
  - PERSECUTORY DELUSION [None]
  - PSYCHOMOTOR HYPERACTIVITY [None]
